FAERS Safety Report 8652351 (Version 2)
Quarter: 2012Q4

REPORT INFORMATION
  Report Type: 
  Country: US (occurrence: US)
  Receive Date: 20120706
  Receipt Date: 20120910
  Transmission Date: 20130627
  Serious: Yes (Hospitalization, Disabling, Other)
  Sender: FDA-Public Use
  Company Number: US-BAYER-2012-064985

PATIENT
  Age: 36 Year
  Sex: Female

DRUGS (2)
  1. YAZ [Suspect]
     Dosage: UNK
     Dates: start: 201012, end: 201106
  2. GIANVI [Suspect]
     Dosage: UNK
     Dates: start: 201012, end: 201106

REACTIONS (7)
  - Embolic stroke [None]
  - Complicated migraine [None]
  - Injury [None]
  - Deformity [None]
  - Anxiety [None]
  - Anhedonia [None]
  - Pain [None]
